FAERS Safety Report 16882266 (Version 1)
Quarter: 2019Q4

REPORT INFORMATION
  Report Type: Spontaneous
  Country: US (occurrence: US)
  Receive Date: 20191003
  Receipt Date: 20191003
  Transmission Date: 20200122
  Serious: Yes (Hospitalization, Other)
  Sender: FDA-Public Use
  Company Number: None

PATIENT
  Age: 60 Year
  Sex: Female
  Weight: 53 kg

DRUGS (2)
  1. ATORVASTATIN CALCIUM. [Suspect]
     Active Substance: ATORVASTATIN CALCIUM
     Indication: HYPERLIPIDAEMIA
     Route: 048
     Dates: start: 20190924, end: 20191002
  2. ROSUVASTATIN 40MG [Suspect]
     Active Substance: ROSUVASTATIN

REACTIONS (5)
  - Aspartate aminotransferase increased [None]
  - Blood creatine phosphokinase increased [None]
  - Product substitution issue [None]
  - Alanine aminotransferase increased [None]
  - Muscular weakness [None]

NARRATIVE: CASE EVENT DATE: 20190930
